FAERS Safety Report 5382091-7 (Version None)
Quarter: 2007Q3

REPORT INFORMATION
  Report Type: 
  Country: None (occurrence: None)
  Receive Date: 20070705
  Receipt Date: 20070619
  Transmission Date: 20080115
  Serious: Yes (Hospitalization, Other)
  Sender: FDA-Public Use
  Company Number: SPV1-2007-02610

PATIENT
  Age: 46 Year
  Sex: Male
  Weight: 130 kg

DRUGS (11)
  1. FOSRENOL [Suspect]
     Dosage: 1000 MG, 3X/DAY:TID, ORAL
     Route: 048
     Dates: start: 20070326, end: 20070404
  2. INSULIN (INSULIN) [Concomitant]
  3. DILAUDID /00080902/ (HYDROMORPHONE HYDROCHLORIDE) [Concomitant]
  4. NEURONTIN [Concomitant]
  5. PROTONIX /01263201/ (PANTOPRAZOLE) [Concomitant]
  6. STARLEX (CEFALEXIN) [Concomitant]
  7. XANAX [Concomitant]
  8. ZOCOR [Concomitant]
  9. TOPROL-XL [Concomitant]
  10. ARANESP [Concomitant]
  11. SENSIPAR (CINACALET HYDROCHLORIDE) [Concomitant]

REACTIONS (3)
  - INCORRECT ROUTE OF DRUG ADMINISTRATION [None]
  - MALABSORPTION [None]
  - X-RAY OF PELVIS AND HIP ABNORMAL [None]
